FAERS Safety Report 5451908-X (Version None)
Quarter: 2007Q3

REPORT INFORMATION
  Report Type: 
  Country: None (occurrence: None)
  Receive Date: 20070912
  Receipt Date: 20070904
  Transmission Date: 20080115
  Serious: No
  Sender: FDA-Public Use
  Company Number: 07H-087-0313150-00

PATIENT
  Age: 60 Year
  Sex: Male
  Weight: 54 kg

DRUGS (10)
  1. PRECEDEX [Suspect]
     Indication: SEDATION
     Dosage: 0.4 MCG/KG/HR, INTRAVENOUS
     Route: 042
     Dates: start: 20070514, end: 20070515
  2. PROPOFOL [Concomitant]
  3. VECURONIUM BROMIDE [Concomitant]
  4. FENTANYL [Concomitant]
  5. ROPIVACAINE HYDROCHLORIDE HYDRATE (ROPIVACAINE HYDROCHLORIDE) [Concomitant]
  6. MORPHINE [Concomitant]
  7. LANSOPRAZOLE [Concomitant]
  8. CEFAZOLIN SODIUM [Concomitant]
  9. SIVELESTAT SODIUM HYDRATE (SIVELESTAT) [Concomitant]
  10. NAFAMOSTAT MESILATE (NAFAMOSTAT MESILATE) [Concomitant]

REACTIONS (2)
  - BLOOD ALBUMIN DECREASED [None]
  - PROTHROMBIN TIME PROLONGED [None]
